FAERS Safety Report 9364463 (Version 1)
Quarter: 2013Q2

REPORT INFORMATION
  Report Type: Spontaneous
  Country: FR (occurrence: None)
  Receive Date: 20130619
  Receipt Date: 20130619
  Transmission Date: 20140414
  Serious: Yes (Other)
  Sender: FDA-Public Use
  Company Number: FR-2013-1795

PATIENT
  Age: 66 Year
  Sex: Female

DRUGS (3)
  1. NAVELBINE (VINORELBINE TARTRATE) INFUSION [Suspect]
     Indication: BREAST CANCER METASTATIC
     Dosage: 44.8 MG, DAYS 1 AND 8, CYCLICAL, 8TH COURSE, INTRAVENOUS
     Route: 042
     Dates: start: 20130411, end: 201304
  2. FILGRASTIM (FILGRASTIM) [Suspect]
     Indication: PRODUCT USED FOR UNKNOWN INDICATION
     Dosage: 1 DF, DAYS 1 TO 5, CYDICAL, QD (1/DAY), SUBCUTANEOUS
     Route: 058
     Dates: start: 20130412, end: 20130415
  3. HERCEPTIN (TRASTUZUMAB) [Suspect]
     Indication: BREAST CANCER METASTATIC
     Dosage: 480 MG, DAY 1, CYCLICAL, INTRAVENOUS
     Route: 042
     Dates: start: 20130411

REACTIONS (2)
  - Palmar-plantar erythrodysaesthesia syndrome [None]
  - Dermatitis bullous [None]
